FAERS Safety Report 26079975 (Version 3)
Quarter: 2025Q4

REPORT INFORMATION
  Report Type: Report from Study
  Country: US (occurrence: US)
  Receive Date: 20251123
  Receipt Date: 20251223
  Transmission Date: 20260117
  Serious: No
  Sender: JOHNSON AND JOHNSON
  Company Number: US-JNJFOC-20251161641

PATIENT
  Age: 49 Year
  Sex: Female
  Weight: 74.8 kg

DRUGS (10)
  1. TREMFYA [Suspect]
     Active Substance: GUSELKUMAB
     Indication: Psoriatic arthropathy
     Route: 058
     Dates: start: 20250515
  2. PROTONIX 40 MG TABLET DR [Concomitant]
     Indication: Product used for unknown indication
  3. UBRELVY 100 MG TABLET [Concomitant]
     Indication: Product used for unknown indication
  4. TUMS 200(500)MG TAB CHEW [Concomitant]
     Indication: Product used for unknown indication
  5. MYLANTA MAXIMUM STRENGTH [Concomitant]
     Active Substance: ALUMINUM HYDROXIDE\DIMETHICONE\MAGNESIUM HYDROXIDE
     Indication: Product used for unknown indication
  6. ELETRIPTAN HBR 40 MG TABLET [Concomitant]
     Indication: Product used for unknown indication
  7. MAGNESIUM 100 MG TABLET [Concomitant]
     Indication: Product used for unknown indication
  8. SUMATRIPTAN SUCCINATE 100 MG TABLET [Concomitant]
     Indication: Product used for unknown indication
  9. VITAMIN D3 1250 MCG CAPSULE [Concomitant]
     Indication: Product used for unknown indication
  10. OTEZLA [Concomitant]
     Active Substance: APREMILAST
     Indication: Product used for unknown indication

REACTIONS (4)
  - Hepatic enzyme increased [Unknown]
  - Musculoskeletal stiffness [Unknown]
  - Headache [Unknown]
  - Drug ineffective [Unknown]
